FAERS Safety Report 24960923 (Version 1)
Quarter: 2025Q1

REPORT INFORMATION
  Report Type: Spontaneous
  Country: GB (occurrence: GB)
  Receive Date: 20250212
  Receipt Date: 20250212
  Transmission Date: 20250409
  Serious: Yes (Hospitalization, Other)
  Sender: JOHNSON AND JOHNSON
  Company Number: GB-MHRA-ADR 27177111

PATIENT
  Age: 74 Year
  Sex: Male

DRUGS (17)
  1. XARELTO [Suspect]
     Active Substance: RIVAROXABAN
     Indication: Product used for unknown indication
     Dosage: 10 MILLIGRAM, QD
  2. XARELTO [Suspect]
     Active Substance: RIVAROXABAN
  3. XARELTO [Suspect]
     Active Substance: RIVAROXABAN
  4. REVLIMID [Suspect]
     Active Substance: LENALIDOMIDE
     Indication: Product used for unknown indication
     Dosage: 15 MG, QD
  5. REVLIMID [Suspect]
     Active Substance: LENALIDOMIDE
  6. REVLIMID [Suspect]
     Active Substance: LENALIDOMIDE
  7. DEXAMETHASONE [Suspect]
     Active Substance: DEXAMETHASONE
     Indication: Product used for unknown indication
  8. COTRIMOXAZOLE [Suspect]
     Active Substance: SULFAMETHOXAZOLE\TRIMETHOPRIM
     Indication: Product used for unknown indication
     Dosage: UNK UNK, QD
  9. NINLARO [Suspect]
     Active Substance: IXAZOMIB CITRATE
     Indication: Product used for unknown indication
     Dosage: 2.3 MG, QW
  10. CALCIUM CARBONATE\CHOLECALCIFEROL [Suspect]
     Active Substance: CALCIUM CARBONATE\CHOLECALCIFEROL
     Indication: Product used for unknown indication
     Dosage: UNK UNK, QD
  11. ACYCLOVIR [Suspect]
     Active Substance: ACYCLOVIR
     Indication: Product used for unknown indication
     Dosage: 400 MG, BID
  12. ACYCLOVIR [Suspect]
     Active Substance: ACYCLOVIR
     Dosage: 20 MG, BID
  13. ACYCLOVIR [Suspect]
     Active Substance: ACYCLOVIR
     Dosage: 800 MG, QD
  14. METOCLOPRAMIDE [Suspect]
     Active Substance: METOCLOPRAMIDE
     Indication: Product used for unknown indication
     Dosage: 10 MG, TID
  15. IMODIUM [Suspect]
     Active Substance: LOPERAMIDE HYDROCHLORIDE
  16. OMEPRAZOLE [Suspect]
     Active Substance: OMEPRAZOLE
     Indication: Product used for unknown indication
     Dosage: 20 MG, QD
  17. EPOETIN BETA [Suspect]
     Active Substance: ERYTHROPOIETIN
     Indication: Product used for unknown indication
     Dosage: 2000 MG, OW
     Route: 058

REACTIONS (15)
  - Cerebrovascular accident [Unknown]
  - Hypoaesthesia [Unknown]
  - Pyrexia [Unknown]
  - Decreased appetite [Unknown]
  - Neutrophil count abnormal [Unknown]
  - Balance disorder [Unknown]
  - Confusional state [Unknown]
  - Fall [Unknown]
  - Malaise [Unknown]
  - Limb discomfort [Unknown]
  - Gait disturbance [Unknown]
  - Musculoskeletal chest pain [Unknown]
  - Productive cough [Unknown]
  - Feeling cold [Unknown]
  - Chromaturia [Unknown]
